FAERS Safety Report 9869005 (Version 3)
Quarter: 2014Q1

REPORT INFORMATION
  Report Type: Report from Study
  Country: JP (occurrence: JP)
  Receive Date: 20140205
  Receipt Date: 20140210
  Transmission Date: 20141002
  Serious: Yes (Other)
  Sender: FDA-Public Use
  Company Number: JP-009507513-1312JPN004250

PATIENT
  Age: 68 Year
  Sex: Female
  Weight: 59 kg

DRUGS (12)
  1. PEGINTRON [Suspect]
     Indication: CHRONIC HEPATITIS C
     Dosage: 0.83 MICROGRAM PER KILOGRAM, QW
     Route: 058
     Dates: start: 20120426, end: 20120501
  2. PEGINTRON [Suspect]
     Dosage: 0.42 MICROGRAM PER KILOGRAM, QW
     Route: 058
     Dates: start: 20120502, end: 20120523
  3. PEGINTRON [Suspect]
     Dosage: 0.21 MICROGRAM PER KILOGRAM, QW
     Route: 058
     Dates: start: 20120530, end: 20120613
  4. PEGINTRON [Suspect]
     Dosage: 0.08 MICROGRAM PER KILOGRAM, QW
     Route: 058
     Dates: start: 20120614, end: 20120622
  5. REBETOL [Suspect]
     Indication: CHRONIC HEPATITIS C
     Dosage: 400 MG, QD
     Route: 048
     Dates: start: 20120426, end: 20120516
  6. REBETOL [Suspect]
     Dosage: 200 MG, QD
     Route: 048
     Dates: start: 20120517, end: 20120628
  7. TELAVIC [Suspect]
     Indication: CHRONIC HEPATITIS C
     Dosage: 1500MG, QD
     Route: 048
     Dates: start: 20120426, end: 20120628
  8. PARIET [Concomitant]
     Indication: PROPHYLAXIS
     Dosage: 30 MG, QD
     Route: 048
     Dates: start: 20120426
  9. ZYLORIC [Concomitant]
     Indication: HYPERURICAEMIA
     Dosage: 300 MG, QD
     Route: 048
     Dates: start: 20120502, end: 20120628
  10. FERO-GRADUMET [Concomitant]
     Indication: PROPHYLAXIS
     Dosage: 210 MG, QD
     Route: 048
     Dates: start: 20120426, end: 20120719
  11. TALION (BEPOTASTINE BESYLATE) [Concomitant]
     Indication: PROPHYLAXIS
     Dosage: 20 MG, QD
     Route: 048
     Dates: start: 20120426, end: 20120704
  12. PRIMPERAN [Concomitant]
     Indication: PROPHYLAXIS
     Dosage: UNK, PRN
     Route: 048
     Dates: start: 20120426, end: 20120628

REACTIONS (3)
  - Bone marrow failure [Recovered/Resolved]
  - Hyperuricaemia [Recovered/Resolved]
  - Adverse reaction [Unknown]
